FAERS Safety Report 10535156 (Version 2)
Quarter: 2014Q4

REPORT INFORMATION
  Report Type: Spontaneous
  Country: US (occurrence: US)
  Receive Date: 20141022
  Receipt Date: 20141028
  Transmission Date: 20150529
  Serious: Yes (Hospitalization)
  Sender: FDA-Public Use
  Company Number: US-PFIZER INC-2014287310

PATIENT
  Age: 83 Year
  Sex: Male
  Weight: 88 kg

DRUGS (2)
  1. PROCRIT [Concomitant]
     Active Substance: ERYTHROPOIETIN
     Dosage: UNK
  2. INLYTA [Suspect]
     Active Substance: AXITINIB
     Indication: RENAL CANCER METASTATIC
     Dosage: 5 MG, 2X/DAY
     Dates: start: 20140604

REACTIONS (1)
  - General physical health deterioration [Unknown]

NARRATIVE: CASE EVENT DATE: 2014
